FAERS Safety Report 20005111 (Version 1)
Quarter: 2021Q4

REPORT INFORMATION
  Report Type: Spontaneous
  Country: US (occurrence: US)
  Receive Date: 20211028
  Receipt Date: 20211028
  Transmission Date: 20220303
  Serious: No
  Sender: FDA-Public Use
  Company Number: US-DRREDDYS-SPO/USA/21/0142924

PATIENT
  Age: 29 Year
  Sex: Male

DRUGS (1)
  1. ACCUTANE [Suspect]
     Active Substance: ISOTRETINOIN
     Indication: Product used for unknown indication
     Dosage: RMA ISSUE DATE:20 MAY 2021 12:14:32 PM,22 JUNE 2021 10:30:13 AM,20 JULY 2021 4:29:11 PM,20 SEPTEMBER

REACTIONS (3)
  - Lip dry [Unknown]
  - Epistaxis [Unknown]
  - Arthralgia [Unknown]
